FAERS Safety Report 7462415-7 (Version None)
Quarter: 2011Q2

REPORT INFORMATION
  Report Type: 
  Country: None (occurrence: None)
  Receive Date: 20110506
  Receipt Date: 20110331
  Transmission Date: 20111010
  Serious: Yes (Hospitalization, Other)
  Sender: FDA-Public Use
  Company Number: US-BAYER-201019010NA

PATIENT
  Age: 27 Year
  Sex: Female
  Weight: 90.703 kg

DRUGS (12)
  1. YASMIN [Suspect]
     Indication: PREMENSTRUAL SYNDROME
  2. DROSPIRENONE AND ETHINYL ESTRADIOL [Suspect]
     Indication: PREMENSTRUAL SYNDROME
  3. YASMIN [Suspect]
     Indication: CONTRACEPTION
     Dosage: UNK
     Route: 048
     Dates: start: 20020101, end: 20090101
  4. PROPRANOLOL [Concomitant]
     Indication: HYPERTENSION
     Dosage: 40 MG, UNK
  5. DROSPIRENONE AND ETHINYL ESTRADIOL [Suspect]
     Indication: CONTRACEPTION
     Dosage: UNK
     Dates: start: 20020101, end: 20090101
  6. CEPHALEXIN [Concomitant]
     Dosage: 500 MG, UNK
  7. YASMIN [Suspect]
     Indication: ACNE
  8. AMITRIPTYLINE [Concomitant]
     Dosage: 50 MG, UNK
  9. TRAMADOL [Concomitant]
     Dosage: 50 MG, UNK
  10. DROSPIRENONE AND ETHINYL ESTRADIOL [Suspect]
     Indication: ACNE
  11. PRAMOSONE [Concomitant]
     Dosage: 2.5 %, UNK
  12. ALPRAZOLAM [Concomitant]
     Dosage: 0.25 MG, UNK

REACTIONS (1)
  - DEEP VEIN THROMBOSIS [None]
